FAERS Safety Report 6649813-6 (Version None)
Quarter: 2010Q1

REPORT INFORMATION
  Report Type: 
  Country: None (occurrence: None)
  Receive Date: 20100324
  Receipt Date: 20091105
  Transmission Date: 20100710
  Serious: No
  Sender: FDA-Public Use
  Company Number: US-TYCO HEALTHCARE/MALLINCKRODT-T200902051

PATIENT
  Age: 16 Year
  Sex: Female

DRUGS (6)
  1. NALTREXONE HYDROCHLORIDE [Suspect]
     Indication: MANIA
     Dosage: 50 MG, QD (EVERY NIGHT)
     Route: 048
     Dates: start: 20091001, end: 20091001
  2. NALTREXONE HYDROCHLORIDE [Suspect]
     Dosage: 25 MG, QD (EVERY NIGHT)
     Dates: start: 20091001
  3. ZYRTEC [Concomitant]
     Indication: HYPERSENSITIVITY
     Dosage: UNK
     Route: 048
  4. MIRALAX [Concomitant]
     Indication: CONSTIPATION
     Dosage: UNK
     Route: 048
  5. ABILIFY [Concomitant]
     Indication: ANXIETY
     Dosage: OD
     Route: 048
  6. ACIDOPHILUS [Concomitant]
     Dosage: OD
     Route: 048

REACTIONS (3)
  - DYSGEUSIA [None]
  - HYPERSOMNIA [None]
  - SOMNOLENCE [None]
